FAERS Safety Report 17649618 (Version 1)
Quarter: 2020Q2

REPORT INFORMATION
  Report Type: Spontaneous
  Country: BR (occurrence: BR)
  Receive Date: 20200409
  Receipt Date: 20200409
  Transmission Date: 20200713
  Serious: Yes (Other)
  Sender: FDA-Public Use
  Company Number: BR-JNJFOC-20200345616

PATIENT
  Sex: Female
  Weight: 85 kg

DRUGS (2)
  1. AZATHIOPRINE. [Concomitant]
     Active Substance: AZATHIOPRINE
     Indication: PRODUCT USED FOR UNKNOWN INDICATION
  2. REMICADE [Suspect]
     Active Substance: INFLIXIMAB
     Indication: CROHN^S DISEASE
     Route: 042
     Dates: end: 20200203

REACTIONS (5)
  - Arthralgia [Unknown]
  - Off label use [Unknown]
  - Fistula [Unknown]
  - Therapeutic product effect decreased [Unknown]
  - Product use issue [Unknown]
